FAERS Safety Report 9356228 (Version 2)
Quarter: 2013Q3

REPORT INFORMATION
  Report Type: Spontaneous
  Country: FR (occurrence: FR)
  Receive Date: 20130619
  Receipt Date: 20130723
  Transmission Date: 20140515
  Serious: Yes (Hospitalization)
  Sender: FDA-Public Use
  Company Number: FR-TEVA-413552ISR

PATIENT
  Age: 79 Year
  Sex: Female

DRUGS (21)
  1. FUROSEMIDE TEVA 40 MG [Suspect]
     Indication: OEDEMA
     Dosage: 80 MILLIGRAM DAILY; FOR LONG TERM (MORE THAN 2012)
     Route: 048
  2. FUROSEMIDE TEVA 40 MG [Suspect]
     Indication: CARDIOVASCULAR DISORDER
  3. RISPERDAL [Concomitant]
     Dosage: 2 GTT DAILY; EVERY DAY AT 4 PM
  4. DIFFU K [Concomitant]
     Dosage: 1 DOSAGE FORMS DAILY;
  5. BROMAZEPAM [Concomitant]
     Dosage: 1 DOSAGE FORMS DAILY; 0.25 DF IN THE MORNING AND AT NOON, AND 0.5 DF IN THE EVENING
  6. BROMAZEPAM [Concomitant]
  7. THERALENE [Concomitant]
     Dosage: IN THE EVENING AT BEDTIME
  8. PROCORALAN 7.5 MG [Concomitant]
     Dosage: 2 DOSAGE FORMS DAILY;
  9. TRANSIPEG [Concomitant]
  10. CYMBALTA 60 MG [Concomitant]
     Dosage: 1 DOSAGE FORMS DAILY; IN THE EVENING
  11. INNOVAIR [Concomitant]
     Dosage: 4 DOSAGE FORMS DAILY;
  12. EBIXA 10 MG [Concomitant]
     Dosage: 2 DOSAGE FORMS DAILY; IN THE EVENING
  13. APROVEL 150 MG [Concomitant]
     Dosage: 1 DOSAGE FORMS DAILY;
  14. MONO TILDIEM LP 200 MG [Concomitant]
     Dosage: 1 DOSAGE FORMS DAILY;
  15. PARIET 20 MG [Concomitant]
     Dosage: 1 DOSAGE FORMS DAILY;
  16. NORMACOL [Concomitant]
  17. EDUCTYL [Concomitant]
  18. AMYCOL [Concomitant]
  19. FUCIDINE [Concomitant]
  20. DIPROSONE [Concomitant]
  21. CYTEAL [Concomitant]

REACTIONS (3)
  - Feeling abnormal [Not Recovered/Not Resolved]
  - Pulmonary oedema [Not Recovered/Not Resolved]
  - Somnolence [Not Recovered/Not Resolved]
